FAERS Safety Report 23498419 (Version 1)
Quarter: 2024Q1

REPORT INFORMATION
  Report Type: Spontaneous
  Country: US (occurrence: US)
  Receive Date: 20240207
  Receipt Date: 20240207
  Transmission Date: 20240410
  Serious: No
  Sender: FDA-Public Use
  Company Number: US-BAUSCHBL-2024BNL001306

PATIENT
  Sex: Female

DRUGS (4)
  1. BACITRACIN ZINC AND POLYMYXIN B SULFATE [Suspect]
     Active Substance: BACITRACIN ZINC\POLYMYXIN B SULFATE
     Indication: Postoperative care
     Route: 047
     Dates: start: 20240125
  2. BACITRACIN ZINC AND POLYMYXIN B SULFATE [Suspect]
     Active Substance: BACITRACIN ZINC\POLYMYXIN B SULFATE
     Indication: Product use in unapproved indication
  3. DEVICE [Suspect]
     Active Substance: DEVICE
     Indication: Postoperative care
     Route: 047
  4. DEVICE [Suspect]
     Active Substance: DEVICE
     Indication: Product use in unapproved indication

REACTIONS (3)
  - Eye swelling [Unknown]
  - Hypersensitivity [Unknown]
  - Product use in unapproved indication [Unknown]

NARRATIVE: CASE EVENT DATE: 20240101
